FAERS Safety Report 9458744 (Version 1)
Quarter: 2013Q3

REPORT INFORMATION
  Report Type: Not Available
  Country: US (occurrence: US)
  Receive Date: 20130814
  Receipt Date: 20130814
  Transmission Date: 20140515
  Serious: No
  Sender: FDA-Public Use
  Company Number: US-TARO-2012P1051102

PATIENT
  Age: 15 Year
  Sex: Male
  Weight: 71.22 kg

DRUGS (1)
  1. FLUOCINONIDE CREAM USP 0.05% [Suspect]
     Route: 061
     Dates: start: 20120720, end: 20120721

REACTIONS (8)
  - Application site pruritus [Recovered/Resolved]
  - Application site pain [Recovered/Resolved]
  - Formication [Recovered/Resolved]
  - Application site vesicles [Recovered/Resolved]
  - Hypersensitivity [Recovered/Resolved]
  - Application site exfoliation [Recovered/Resolved]
  - Application site burn [Recovering/Resolving]
  - Skin infection [Recovering/Resolving]
